FAERS Safety Report 4535129-0 (Version None)
Quarter: 2004Q4

REPORT INFORMATION
  Report Type: 
  Country: None (occurrence: None)
  Receive Date: 20041214
  Receipt Date: 20041007
  Transmission Date: 20050328
  Serious: No
  Sender: FDA-Public Use
  Company Number: 2004238400US

PATIENT
  Sex: Male
  Weight: 69.4 kg

DRUGS (1)
  1. BEXTRA [Suspect]
     Dosage: 20 MG, QD
     Dates: start: 20030101

REACTIONS (3)
  - BLOOD PRESSURE INCREASED [None]
  - HICCUPS [None]
  - PAIN [None]
